FAERS Safety Report 15553115 (Version 1)
Quarter: 2018Q4

REPORT INFORMATION
  Report Type: Report from Study
  Country: US (occurrence: US)
  Receive Date: 20181026
  Receipt Date: 20181026
  Transmission Date: 20190205
  Serious: Yes (Hospitalization, Other)
  Sender: FDA-Public Use
  Company Number: US-BRISTOL-MYERS SQUIBB COMPANY-BMS-2018-098971

PATIENT
  Age: 65 Year
  Sex: Male
  Weight: 70.9 kg

DRUGS (1)
  1. NIVOLUMAB [Suspect]
     Active Substance: NIVOLUMAB
     Indication: SQUAMOUS CELL CARCINOMA OF LUNG
     Dosage: 3 MG/KG, OVER 30 MINUTES ON DAY 1
     Route: 042
     Dates: start: 20180125

REACTIONS (2)
  - Syncope [Recovered/Resolved with Sequelae]
  - Amylase abnormal [Unknown]

NARRATIVE: CASE EVENT DATE: 20181015
